FAERS Safety Report 25445513 (Version 2)
Quarter: 2025Q2

REPORT INFORMATION
  Report Type: Report from Study
  Country: US (occurrence: US)
  Receive Date: 20250617
  Receipt Date: 20250627
  Transmission Date: 20250716
  Serious: No
  Sender: MERCK SHARP & DOHME LLC
  Company Number: US-009507513-2294191

PATIENT
  Age: 73 Year
  Sex: Male
  Weight: 93 kg

DRUGS (15)
  1. SOTATERCEPT [Suspect]
     Active Substance: SOTATERCEPT
     Indication: Pulmonary arterial hypertension
     Dosage: 1.4 ML Q3W
     Route: 058
     Dates: start: 20250519
  2. SOTATERCEPT [Suspect]
     Active Substance: SOTATERCEPT
  3. SOTATERCEPT [Suspect]
     Active Substance: SOTATERCEPT
  4. SOTATERCEPT [Suspect]
     Active Substance: SOTATERCEPT
  5. WINREVAIR [Suspect]
     Active Substance: SOTATERCEPT-CSRK
     Indication: Pulmonary arterial hypertension
     Dosage: 1.4 ML Q3W
     Route: 058
     Dates: start: 20250519
  6. WINREVAIR [Suspect]
     Active Substance: SOTATERCEPT-CSRK
  7. WINREVAIR [Suspect]
     Active Substance: SOTATERCEPT-CSRK
  8. WINREVAIR [Suspect]
     Active Substance: SOTATERCEPT-CSRK
  9. REMODULIN [Suspect]
     Active Substance: TREPROSTINIL
     Indication: Pulmonary hypertension
     Route: 058
     Dates: start: 20240102
  10. ADEMPAS [Concomitant]
     Active Substance: RIOCIGUAT
  11. SPIRONOLACTONE [Concomitant]
     Active Substance: SPIRONOLACTONE
  12. WARFARIN SODIUM [Concomitant]
     Active Substance: WARFARIN SODIUM
  13. LEVOTHYROXINE SODIUM [Concomitant]
     Active Substance: LEVOTHYROXINE SODIUM
  14. OXYGEN [Concomitant]
     Active Substance: OXYGEN
  15. TORSEMIDE [Concomitant]
     Active Substance: TORSEMIDE

REACTIONS (4)
  - Nasopharyngitis [Unknown]
  - Hot flush [Unknown]
  - Injection site pain [Unknown]
  - COVID-19 [Unknown]

NARRATIVE: CASE EVENT DATE: 20250501
